FAERS Safety Report 23973109 (Version 1)
Quarter: 2024Q2

REPORT INFORMATION
  Report Type: Spontaneous
  Country: US (occurrence: US)
  Receive Date: 20240613
  Receipt Date: 20240613
  Transmission Date: 20240716
  Serious: No
  Sender: FDA-Public Use
  Company Number: US-ELI_LILLY_AND_COMPANY-US202406007507

PATIENT
  Age: 62 Year
  Sex: Female

DRUGS (2)
  1. TALTZ [Suspect]
     Active Substance: IXEKIZUMAB
     Indication: Psoriasis
     Dosage: 80 MG, UNKNOWN
     Route: 058
  2. TALTZ [Suspect]
     Active Substance: IXEKIZUMAB
     Indication: Psoriatic arthropathy

REACTIONS (6)
  - Pain in extremity [Unknown]
  - Joint swelling [Unknown]
  - Sleep disorder due to general medical condition, insomnia type [Unknown]
  - Arthralgia [Unknown]
  - Gait disturbance [Unknown]
  - Injection site rash [Unknown]

NARRATIVE: CASE EVENT DATE: 20240606
